FAERS Safety Report 6360278-4 (Version None)
Quarter: 2009Q3

REPORT INFORMATION
  Report Type: 
  Country: None (occurrence: None)
  Receive Date: 20090917
  Receipt Date: 20090909
  Transmission Date: 20100115
  Serious: Yes (Hospitalization)
  Sender: FDA-Public Use
  Company Number: A0545311B

PATIENT
  Sex: Male
  Weight: 109.2 kg

DRUGS (4)
  1. TOSITUMOMAB [Suspect]
     Indication: NON-HODGKIN'S LYMPHOMA
     Route: 042
     Dates: start: 19981126, end: 19981126
  2. IODINE I 131 TOSITUMOMAB [Suspect]
     Indication: NON-HODGKIN'S LYMPHOMA
     Route: 042
     Dates: start: 19981126, end: 19981126
  3. TOSITUMOMAB [Suspect]
     Route: 042
     Dates: start: 19981203, end: 19981203
  4. IODINE I 131 TOSITUMOMAB [Suspect]
     Route: 042
     Dates: start: 19981203, end: 19981203

REACTIONS (2)
  - HAEMOPHILUS INFECTION [None]
  - RESPIRATORY TRACT INFECTION [None]
